FAERS Safety Report 20523394 (Version 2)
Quarter: 2022Q1

REPORT INFORMATION
  Report Type: Other
  Country: US (occurrence: None)
  Receive Date: 20220228
  Receipt Date: 20220331
  Transmission Date: 20220423
  Serious: Yes (Hospitalization)
  Sender: FDA-Public Use
  Company Number: US-ROCHE-3001107

PATIENT
  Age: 65 Year
  Sex: Female
  Weight: 51.756 kg

DRUGS (19)
  1. OCREVUS [Suspect]
     Active Substance: OCRELIZUMAB
     Indication: Relapsing multiple sclerosis
     Route: 042
     Dates: start: 20190620
  2. OCREVUS [Suspect]
     Active Substance: OCRELIZUMAB
     Dosage: UNKNOWN
     Route: 042
     Dates: start: 201912
  3. MODERNA COVID-19 VACCINE [Suspect]
     Active Substance: ELASOMERAN
     Indication: Product used for unknown indication
     Route: 065
  4. FLUOXETINE [Concomitant]
     Active Substance: FLUOXETINE HYDROCHLORIDE
     Indication: Depression
     Dosage: STARTED BEFORE OCREVUS
     Route: 048
  5. ATORVASTATIN [Concomitant]
     Active Substance: ATORVASTATIN
     Indication: Blood cholesterol increased
     Dosage: STARTED BEFORE OCREVUS
     Route: 048
  6. LOSARTAN [Concomitant]
     Active Substance: LOSARTAN
     Indication: Hypertension
     Dosage: STARTED BEFORE OCREVUS
     Route: 048
  7. AMLODIPINE [Concomitant]
     Active Substance: AMLODIPINE BESYLATE
     Indication: Hypertension
     Dosage: STARTED AFTER OCREVUS
     Route: 048
  8. DIETARY SUPPLEMENT\HERBALS\MILK THISTLE [Concomitant]
     Active Substance: DIETARY SUPPLEMENT\HERBALS\MILK THISTLE
     Dosage: STARTED AFTER OCREVUS
     Route: 048
  9. SENTRY SENIOR [Concomitant]
     Indication: Fatigue
     Dosage: STARTED BEFORE OCREVUS
     Route: 048
  10. GINKGO [Concomitant]
     Active Substance: GINKGO
     Dosage: STARTED BEFORE OCREVUS
     Route: 048
  11. VITAMIN D3 [Concomitant]
     Active Substance: CHOLECALCIFEROL
     Indication: Depression
     Dosage: STARTED BEFORE OCREVUS
     Route: 048
  12. OMEGA-3 FATTY ACIDS [Concomitant]
     Active Substance: OMEGA-3 FATTY ACIDS
     Dosage: STARTED BEFORE OCREVUS
     Route: 048
  13. HERBALS\TURMERIC [Concomitant]
     Active Substance: HERBALS\TURMERIC
     Dosage: STARTED BEFORE OCREVUS
     Route: 048
  14. PSYLLIUM HUSK [Concomitant]
     Active Substance: PSYLLIUM HUSK
     Dosage: STARTED BEFORE OCREVUS
     Route: 048
  15. MOMETASONE FUROATE [Concomitant]
     Active Substance: MOMETASONE FUROATE
     Indication: Seasonal allergy
     Dosage: (2) 50 MCG SPRAYS - 1 IN EACH NOSTRIL; STARTED BEFORE OCREVUS
     Route: 045
  16. LEVOTHYROXINE [Concomitant]
     Active Substance: LEVOTHYROXINE
  17. DECADRON [Concomitant]
     Active Substance: DEXAMETHASONE
  18. AUGMENTIN [Concomitant]
     Active Substance: AMOXICILLIN\CLAVULANATE POTASSIUM
  19. AZITHROMYCIN [Concomitant]
     Active Substance: AZITHROMYCIN

REACTIONS (6)
  - COVID-19 pneumonia [Recovered/Resolved]
  - Hepatic function abnormal [Not Recovered/Not Resolved]
  - Nausea [Recovered/Resolved]
  - Vomiting [Recovered/Resolved]
  - Asthenia [Not Recovered/Not Resolved]
  - Gait disturbance [Not Recovered/Not Resolved]

NARRATIVE: CASE EVENT DATE: 20210303
